FAERS Safety Report 10042110 (Version 1)
Quarter: 2014Q1

REPORT INFORMATION
  Report Type: Spontaneous
  Country: US (occurrence: US)
  Receive Date: 20140327
  Receipt Date: 20140327
  Transmission Date: 20141002
  Serious: Yes (Other)
  Sender: FDA-Public Use
  Company Number: US-BAYER-2014-045397

PATIENT
  Age: 35 Year
  Sex: Female
  Weight: 102.4 kg

DRUGS (9)
  1. YASMIN [Suspect]
  2. PRILOSEC [Concomitant]
  3. MOTRIN [Concomitant]
     Dosage: 800 MG, PRN
  4. VICODIN [Concomitant]
  5. POTASSIUM CHLORIDE [Concomitant]
  6. MORPHINE [Concomitant]
  7. PERCOCET [Concomitant]
  8. KYTRIL [Concomitant]
  9. FLEXERIL [Concomitant]

REACTIONS (2)
  - Cholecystitis acute [None]
  - Pulmonary embolism [None]
